FAERS Safety Report 5590613-6 (Version None)
Quarter: 2008Q1

REPORT INFORMATION
  Report Type: 
  Country: None (occurrence: None)
  Receive Date: 20080109
  Receipt Date: 20080102
  Transmission Date: 20080703
  Serious: Yes (Hospitalization)
  Sender: FDA-Public Use
  Company Number: 163-21880-07120274

PATIENT
  Age: 72 Year
  Sex: Male
  Weight: 79.3795 kg

DRUGS (9)
  1. REVLIMID [Suspect]
     Indication: MULTIPLE MYELOMA
     Dosage: 25 MG, QD FOR 21 DAYS, ORAL, 10 MG, QD FOR 21 DAYS, ORAL
     Route: 048
     Dates: start: 20071008, end: 20071025
  2. REVLIMID [Suspect]
     Indication: MULTIPLE MYELOMA
     Dosage: 25 MG, QD FOR 21 DAYS, ORAL, 10 MG, QD FOR 21 DAYS, ORAL
     Route: 048
     Dates: start: 20071204
  3. MULTI-VIT                    (MULTI-VIT) [Concomitant]
  4. VITAMIN B12 [Concomitant]
  5. WARFARIN SODIUM [Concomitant]
  6. ZOLOFT [Concomitant]
  7. DECADRON [Concomitant]
  8. AREDIA [Concomitant]
  9. ARANESP [Concomitant]

REACTIONS (4)
  - ANAEMIA [None]
  - ARRHYTHMIA [None]
  - BACTERIAL INFECTION [None]
  - NEUTROPENIA [None]
